FAERS Safety Report 12412124 (Version 4)
Quarter: 2016Q3

REPORT INFORMATION
  Report Type: Report from Study
  Country: DK (occurrence: DK)
  Receive Date: 20160527
  Receipt Date: 20160728
  Transmission Date: 20161109
  Serious: Yes (Other)
  Sender: FDA-Public Use
  Company Number: DK-PFIZER INC-2016265687

PATIENT
  Age: 33 Year
  Sex: Male
  Weight: 93.5 kg

DRUGS (2)
  1. ATORVASTATIN [Concomitant]
     Active Substance: ATORVASTATIN
     Indication: HYPERCHOLESTEROLAEMIA
     Dosage: 80 MG, 1X/DAY
     Route: 048
     Dates: start: 20120410
  2. TOFACITINIB CITRATE [Suspect]
     Active Substance: TOFACITINIB CITRATE
     Indication: PSORIASIS
     Dosage: 5 MG TWICE DAILY
     Route: 048
     Dates: start: 20120918, end: 20160418

REACTIONS (1)
  - Testicular malignant teratoma [Not Recovered/Not Resolved]

NARRATIVE: CASE EVENT DATE: 20160418
